FAERS Safety Report 6981744-4 (Version None)
Quarter: 2010Q3

REPORT INFORMATION
  Report Type: 
  Country: None (occurrence: None)
  Receive Date: 20100914
  Receipt Date: 20091012
  Transmission Date: 20110219
  Serious: No
  Sender: FDA-Public Use
  Company Number: US-PFIZER INC-2009253249

PATIENT
  Sex: Male
  Weight: 96.16 kg

DRUGS (3)
  1. LYRICA [Suspect]
     Indication: ARTHRITIS
     Dosage: 200 MG/DAY
     Dates: start: 20090501, end: 20090807
  2. LYRICA [Suspect]
     Indication: MYALGIA
  3. MORPHINE SULFATE [Concomitant]
     Indication: ARTHRITIS
     Dosage: 15 MG, UNK

REACTIONS (2)
  - BLOOD URIC ACID DECREASED [None]
  - MYALGIA [None]
